FAERS Safety Report 25071471 (Version 1)
Quarter: 2025Q1

REPORT INFORMATION
  Report Type: Spontaneous
  Country: US (occurrence: US)
  Receive Date: 20250312
  Receipt Date: 20250312
  Transmission Date: 20250409
  Serious: No
  Sender: SANOFI AVENTIS
  Company Number: US-SA-2025SA072179

PATIENT
  Age: 55 Year
  Sex: Female
  Weight: 65.59 kg

DRUGS (7)
  1. KEVZARA [Suspect]
     Active Substance: SARILUMAB
     Indication: Polymyalgia rheumatica
     Dosage: 200 MG, QOW
     Route: 058
     Dates: start: 20241117
  2. EVENITY [Concomitant]
     Active Substance: ROMOSOZUMAB-AQQG
  3. ALBUTEROL SULFATE [Concomitant]
     Active Substance: ALBUTEROL SULFATE
  4. VITAMINS [Concomitant]
     Active Substance: VITAMINS
  5. PREDNISONE [Concomitant]
     Active Substance: PREDNISONE
  6. VITAMIN B12 [Concomitant]
     Active Substance: CYANOCOBALAMIN
  7. CALCIUM [Concomitant]
     Active Substance: CALCIUM

REACTIONS (2)
  - Aphthous ulcer [Unknown]
  - Drug ineffective [Unknown]
